FAERS Safety Report 5193767-9 (Version None)
Quarter: 2006Q4

REPORT INFORMATION
  Report Type: 
  Country: None (occurrence: None)
  Receive Date: 20061228
  Receipt Date: 20061218
  Transmission Date: 20070319
  Serious: Yes (Other)
  Sender: FDA-Public Use
  Company Number: CH-GLAXOSMITHKLINE-B0451645A

PATIENT
  Age: 66 Year
  Sex: Male

DRUGS (7)
  1. AVANDAMET [Suspect]
     Indication: DIABETES MELLITUS
     Dosage: 1TAB PER DAY
     Route: 048
     Dates: start: 20060801
  2. ASPIRIN [Concomitant]
     Route: 048
  3. LOPRESOR OROS [Concomitant]
     Route: 048
  4. ENALAPRIL MALEATE [Concomitant]
     Route: 048
  5. CITALOPRAM HYDROBROMIDE [Concomitant]
     Route: 048
  6. NORVASC [Concomitant]
     Route: 048
  7. NOVORAPID [Concomitant]
     Route: 048

REACTIONS (2)
  - ASTHMA [None]
  - CHEST DISCOMFORT [None]
